FAERS Safety Report 8233566-4 (Version None)
Quarter: 2012Q1

REPORT INFORMATION
  Report Type: 
  Country: None (occurrence: None)
  Receive Date: 20120326
  Receipt Date: 20120314
  Transmission Date: 20120608
  Serious: Yes (Other)
  Sender: FDA-Public Use
  Company Number: JP-JNJFOC-20120308152

PATIENT
  Age: 47 Year
  Sex: Male
  Weight: 64 kg

DRUGS (7)
  1. VITAMIN D [Concomitant]
     Route: 061
  2. REMICADE [Suspect]
     Indication: PSORIASIS
     Route: 042
     Dates: start: 20110512
  3. REMICADE [Suspect]
     Route: 042
  4. REMICADE [Suspect]
     Dosage: 320 MG
     Route: 042
     Dates: start: 20090302
  5. TOPICAL STEROID [Concomitant]
     Route: 061
  6. REMICADE [Suspect]
     Route: 042
     Dates: start: 20110208
  7. REMICADE [Suspect]
     Route: 042

REACTIONS (1)
  - SQUAMOUS CELL CARCINOMA [None]
